FAERS Safety Report 18727585 (Version 4)
Quarter: 2022Q1

REPORT INFORMATION
  Report Type: Spontaneous
  Country: US (occurrence: US)
  Receive Date: 20210112
  Receipt Date: 20220121
  Transmission Date: 20220423
  Serious: Yes (Other)
  Sender: FDA-Public Use
  Company Number: US-PFIZER INC-2021008087

PATIENT
  Age: 69 Year
  Sex: Male

DRUGS (1)
  1. PREGABALIN [Suspect]
     Active Substance: PREGABALIN
     Dosage: UNK

REACTIONS (5)
  - Neuropathy peripheral [Unknown]
  - Optic nerve injury [Unknown]
  - Sleep deficit [Unknown]
  - Eyelid irritation [Unknown]
  - Drug ineffective [Unknown]
